FAERS Safety Report 9448264 (Version 2)
Quarter: 2013Q3

REPORT INFORMATION
  Report Type: Spontaneous
  Country: BR (occurrence: BR)
  Receive Date: 20130808
  Receipt Date: 20130819
  Transmission Date: 20140515
  Serious: Yes (Other)
  Sender: FDA-Public Use
  Company Number: BR-PFIZER INC-2013227257

PATIENT
  Age: 63 Year
  Sex: Male

DRUGS (3)
  1. XALATAN [Suspect]
     Indication: GLAUCOMA
     Dosage: 1 DROP EACH EYE ONCE A DAY
     Route: 047
     Dates: start: 20080802
  2. XALATAN [Suspect]
     Dosage: ONE DROP IN LEFT
     Dates: start: 2011
  3. COSOPT [Concomitant]
     Indication: GLAUCOMA
     Dosage: 1 DROP IN EACH EYE ONCE A DAY
     Route: 047
     Dates: start: 20080802

REACTIONS (1)
  - Glaucoma [Unknown]
